FAERS Safety Report 11245671 (Version 2)
Quarter: 2015Q3

REPORT INFORMATION
  Report Type: Spontaneous
  Country: US (occurrence: US)
  Receive Date: 20150707
  Receipt Date: 20150730
  Transmission Date: 20151125
  Serious: Yes (Other)
  Sender: FDA-Public Use
  Company Number: US-BAYER-2015-368720

PATIENT
  Sex: Female

DRUGS (2)
  1. AVELOX [Suspect]
     Active Substance: MOXIFLOXACIN HYDROCHLORIDE
     Indication: NASOPHARYNGITIS
     Dosage: 400 MG, UNK
     Dates: start: 20060919
  2. LEVAQUIN [Suspect]
     Active Substance: LEVOFLOXACIN
     Indication: RASH
     Dosage: UNK
     Dates: start: 20061004

REACTIONS (6)
  - Median nerve injury [None]
  - Neuropathy peripheral [None]
  - Ulnar nerve injury [None]
  - Emotional distress [None]
  - Injury [None]
  - Pain [None]
